FAERS Safety Report 6634047-1 (Version None)
Quarter: 2010Q1

REPORT INFORMATION
  Report Type: 
  Country: None (occurrence: None)
  Receive Date: 20100315
  Receipt Date: 20100310
  Transmission Date: 20100710
  Serious: Yes (Death)
  Sender: FDA-Public Use
  Company Number: PHHY2010CA13580

PATIENT
  Sex: Male

DRUGS (10)
  1. ACLASTA [Suspect]
     Indication: OSTEOPOROSIS
     Dosage: 5 MG, YEARLY
     Route: 042
     Dates: start: 20090424
  2. PARIET [Concomitant]
  3. ELTROXIN [Concomitant]
  4. ADALAT [Concomitant]
  5. GLYBURIDE [Concomitant]
  6. DOMPERIDONE [Concomitant]
  7. METFORMIN HCL [Concomitant]
  8. METOPROLOL [Concomitant]
  9. COVERSYL [Concomitant]
  10. NORVASC [Concomitant]

REACTIONS (1)
  - DEATH [None]
